FAERS Safety Report 8599809-2 (Version None)
Quarter: 2012Q3

REPORT INFORMATION
  Report Type: 
  Country: None (occurrence: None)
  Receive Date: 20120816
  Receipt Date: 20120806
  Transmission Date: 20120928
  Serious: Yes (Hospitalization)
  Sender: FDA-Public Use
  Company Number: IT-ELI_LILLY_AND_COMPANY-IT201208001924

PATIENT
  Sex: Female

DRUGS (7)
  1. GLIMEPIRIDE [Concomitant]
     Indication: DIABETES MELLITUS
     Dosage: 3 DF, QD
     Route: 048
     Dates: start: 20090101, end: 20120723
  2. LANSOPRAZOLE [Concomitant]
     Route: 048
  3. NORVASC [Concomitant]
     Route: 048
  4. LEVOTHYROXINE SODIUM [Concomitant]
     Route: 048
  5. MAGNESIUM HYDROXIDE TAB [Concomitant]
     Route: 048
  6. FRAGMIN [Concomitant]
     Route: 058
  7. HUMALOG [Suspect]
     Indication: DIABETES MELLITUS
     Dosage: 1 DF, PRN
     Dates: start: 20090101, end: 20120723

REACTIONS (3)
  - HYPOGLYCAEMIA [None]
  - BRADYCARDIA [None]
  - ORTHOSTATIC HYPOTENSION [None]
